FAERS Safety Report 6261588-1 (Version None)
Quarter: 2009Q3

REPORT INFORMATION
  Report Type: 
  Country: None (occurrence: None)
  Receive Date: 20090709
  Receipt Date: 20090318
  Transmission Date: 20100115
  Serious: No
  Sender: FDA-Public Use
  Company Number: US-BAYER-200916085NA

PATIENT
  Sex: Female
  Weight: 57 kg

DRUGS (3)
  1. CLIMARA PRO [Suspect]
     Indication: DRUG USE FOR UNKNOWN INDICATION
     Dosage: 0.045/0.015 MG CONTINUOUS DELIVERY FOR ONCE WEEKLY APPLICATION
     Route: 062
     Dates: start: 20070101, end: 20090101
  2. VITAMINS [Concomitant]
  3. ASPIRIN [Concomitant]
     Route: 048

REACTIONS (1)
  - APPLICATION SITE RASH [None]
